FAERS Safety Report 5042068-8 (Version None)
Quarter: 2006Q2

REPORT INFORMATION
  Report Type: 
  Country: None (occurrence: None)
  Receive Date: 20060630
  Receipt Date: 20060620
  Transmission Date: 20061013
  Serious: Yes (Hospitalization)
  Sender: FDA-Public Use
  Company Number: 2006076733

PATIENT
  Sex: Male
  Weight: 120 kg

DRUGS (2)
  1. AMLODIPINE [Suspect]
     Indication: HYPERTENSION
     Dosage: 20 M G (10 MG, 2 IN 1 D)
  2. HYPERIUM (RILMENIDINE) [Suspect]
     Indication: HYPERTENSION
     Dosage: 2 TABLETS DAILY

REACTIONS (2)
  - GROIN ABSCESS [None]
  - OVERDOSE [None]
